FAERS Safety Report 8843303 (Version 1)
Quarter: 2012Q4

REPORT INFORMATION
  Report Type: 
  Country: CA (occurrence: CA)
  Receive Date: 20121016
  Receipt Date: 20121016
  Transmission Date: 20130627
  Serious: Yes (Other)
  Sender: FDA-Public Use
  Company Number: PHHY2005CA007747

PATIENT

DRUGS (1)
  1. SANDOSTATIN LAR [Suspect]

REACTIONS (9)
  - Hypotension [Unknown]
  - Blood pressure diastolic decreased [Unknown]
  - Balance disorder [Unknown]
  - Confusional state [Unknown]
  - Urine odour abnormal [Unknown]
  - Abnormal faeces [Unknown]
  - Hyperglycaemia [Unknown]
  - Dizziness [Unknown]
  - Heart rate irregular [Unknown]
